FAERS Safety Report 7108689-3 (Version None)
Quarter: 2010Q4

REPORT INFORMATION
  Report Type: 
  Country: None (occurrence: None)
  Receive Date: 20101115
  Receipt Date: 20101115
  Transmission Date: 20110411
  Serious: Yes (Disabling)
  Sender: FDA-Public Use
  Company Number: None

PATIENT
  Age: 19 Year
  Sex: Female
  Weight: 72.5755 kg

DRUGS (2)
  1. EXCEDRIN (MIGRAINE) [Suspect]
     Indication: HEADACHE
     Dosage: 2 2 PO
     Route: 048
     Dates: start: 19980420, end: 19990420
  2. EXCEDRIN (MIGRAINE) [Suspect]
     Indication: TINNITUS
     Dosage: 2 2 PO
     Route: 048
     Dates: start: 19980420, end: 19990420

REACTIONS (3)
  - EPISTAXIS [None]
  - NERVOUSNESS [None]
  - TINNITUS [None]
